FAERS Safety Report 4673445-2 (Version None)
Quarter: 2005Q2

REPORT INFORMATION
  Report Type: 
  Country: None (occurrence: None)
  Receive Date: 20050525
  Receipt Date: 20041203
  Transmission Date: 20051028
  Serious: Yes (Other)
  Sender: FDA-Public Use
  Company Number: GB-GLAXOSMITHKLINE-B0361059A

PATIENT
  Sex: Male

DRUGS (7)
  1. PAROXETINE HYDROCHLORIDE [Suspect]
     Route: 065
     Dates: start: 20010101, end: 20020101
  2. NIFEDIPINE [Concomitant]
     Route: 065
  3. ATENOLOL [Concomitant]
     Route: 065
  4. AMLODIPINE [Concomitant]
     Route: 065
  5. SIMVASTATIN [Concomitant]
     Route: 065
  6. LISINOPRIL [Concomitant]
     Route: 065
  7. BENDROFLUAZIDE [Concomitant]
     Route: 065

REACTIONS (7)
  - AGGRESSION [None]
  - ANGER [None]
  - CHEST PAIN [None]
  - DEPRESSED MOOD [None]
  - HAEMORRHOIDS [None]
  - ILL-DEFINED DISORDER [None]
  - TESTICULAR PAIN [None]
